FAERS Safety Report 24727758 (Version 1)
Quarter: 2024Q4

REPORT INFORMATION
  Report Type: Spontaneous
  Country: NO (occurrence: NO)
  Receive Date: 20241212
  Receipt Date: 20241212
  Transmission Date: 20250114
  Serious: Yes (Hospitalization)
  Sender: SANDOZ
  Company Number: None

PATIENT
  Age: 50 Year
  Sex: Female

DRUGS (4)
  1. TYRUKO [Suspect]
     Active Substance: NATALIZUMAB-SZTN
     Indication: Multiple sclerosis
     Dosage: CONTINUED USE OF MEDICINAL PRODUCT
     Route: 042
  2. Baklofen viatris [Concomitant]
     Indication: Muscle spasticity
     Dosage: CONTINUED USE OF MEDICINAL PRODUCT
     Route: 065
     Dates: start: 20210903
  3. MIRABEGRON [Concomitant]
     Active Substance: MIRABEGRON
     Indication: Hypertonic bladder
     Dosage: CONTINUED USE OF MEDICINAL PRODUCT
     Route: 065
     Dates: start: 20200121
  4. BOTOX [Concomitant]
     Active Substance: ONABOTULINUMTOXINA
     Indication: Muscle spasticity
     Dosage: THE DOSE AND FREQUENCY VARYCONTINUED USE OF MEDICINAL PRODUCT
     Route: 065
     Dates: start: 20230126

REACTIONS (6)
  - Pain of skin [Unknown]
  - Blister [Unknown]
  - Vision blurred [Unknown]
  - Ocular hyperaemia [Unknown]
  - Eye pain [Unknown]
  - Ophthalmic herpes zoster [Unknown]

NARRATIVE: CASE EVENT DATE: 20241120
